FAERS Safety Report 18347359 (Version 1)
Quarter: 2020Q4

REPORT INFORMATION
  Report Type: Spontaneous
  Country: DE (occurrence: DE)
  Receive Date: 20201006
  Receipt Date: 20201006
  Transmission Date: 20210114
  Serious: Yes (Other)
  Sender: FDA-Public Use
  Company Number: DE-ROCHE-2689800

PATIENT
  Age: 26 Year
  Sex: Female

DRUGS (1)
  1. XOLAIR [Suspect]
     Active Substance: OMALIZUMAB
     Indication: ASTHMA
     Dosage: 450 MG / 4 WEEKS (14 DAYS 150 MG OR 300 MG)
     Route: 058
     Dates: start: 20091201, end: 20130930

REACTIONS (5)
  - Arrhythmia [Recovered/Resolved]
  - Alopecia [Recovered/Resolved]
  - Sensory disturbance [Unknown]
  - Onychoclasis [Recovered/Resolved]
  - Disturbance in attention [Not Recovered/Not Resolved]

NARRATIVE: CASE EVENT DATE: 20091201
